FAERS Safety Report 11194428 (Version 7)
Quarter: 2015Q4

REPORT INFORMATION
  Report Type: Spontaneous
  Country: US (occurrence: US)
  Receive Date: 20150616
  Receipt Date: 20151224
  Transmission Date: 20160304
  Serious: Yes (Hospitalization, Other)
  Sender: FDA-Public Use
  Company Number: US-ALLERGAN-1511060US

PATIENT
  Age: 79 Year
  Sex: Male
  Weight: 63.49 kg

DRUGS (8)
  1. SYSTANE (HYPROMELLOSE 2910 (4000 MPA.S)) [Concomitant]
     Active Substance: HYPROMELLOSE 2910 (4000 MPA.S)
     Route: 047
  2. LUMIGAN [Suspect]
     Active Substance: BIMATOPROST
     Indication: GLAUCOMA
     Dosage: 1 GTT, QHS
     Route: 047
     Dates: start: 1980
  3. AMLODIPINE [Concomitant]
     Active Substance: AMLODIPINE BESYLATE
     Indication: CARDIAC DISORDER
     Route: 048
  4. LOSARTAN. [Concomitant]
     Active Substance: LOSARTAN
     Indication: CARDIAC DISORDER
     Route: 048
  5. VALSARTAN. [Concomitant]
     Active Substance: VALSARTAN
     Indication: MYOCARDIAL INFARCTION
     Dosage: 50 MG, QD
     Route: 048
  6. MUCINEX [Concomitant]
     Active Substance: GUAIFENESIN
     Indication: PRODUCT USED FOR UNKNOWN INDICATION
  7. COMBIGAN [Suspect]
     Active Substance: BRIMONIDINE TARTRATE\TIMOLOL MALEATE
     Indication: GLAUCOMA
     Dosage: 1 GTT, BID
     Route: 047
     Dates: start: 1980, end: 20151219
  8. TIMOLOL. [Concomitant]
     Active Substance: TIMOLOL
     Indication: GLAUCOMA

REACTIONS (20)
  - Rhinorrhoea [Not Recovered/Not Resolved]
  - Thrombosis [Not Recovered/Not Resolved]
  - Heart rate decreased [Unknown]
  - Nasopharyngitis [Not Recovered/Not Resolved]
  - Visual acuity reduced [Not Recovered/Not Resolved]
  - Hypersensitivity [Not Recovered/Not Resolved]
  - Syncope [Not Recovered/Not Resolved]
  - Eye pruritus [Unknown]
  - Rash [Recovered/Resolved]
  - Myocardial infarction [Recovered/Resolved]
  - Palpitations [Not Recovered/Not Resolved]
  - Pain in extremity [Unknown]
  - Blindness unilateral [Not Recovered/Not Resolved]
  - Renal impairment [Not Recovered/Not Resolved]
  - Cough [Not Recovered/Not Resolved]
  - Hypertension [Unknown]
  - Ocular hyperaemia [Unknown]
  - Cardiac failure congestive [Not Recovered/Not Resolved]
  - Blood cholesterol abnormal [Not Recovered/Not Resolved]
  - Eye haemorrhage [Recovered/Resolved]

NARRATIVE: CASE EVENT DATE: 1980
